FAERS Safety Report 18619295 (Version 1)
Quarter: 2020Q4

REPORT INFORMATION
  Report Type: Spontaneous
  Country: US (occurrence: US)
  Receive Date: 20201215
  Receipt Date: 20201215
  Transmission Date: 20210114
  Serious: Yes (Other)
  Sender: FDA-Public Use
  Company Number: US-PURDUE-USA-2020-0187441

PATIENT

DRUGS (1)
  1. OXYCODONE HYDROCHLORIDE (SIMILAR TO NDA 22-272) [Suspect]
     Active Substance: OXYCODONE HYDROCHLORIDE
     Indication: PRODUCT USED FOR UNKNOWN INDICATION
     Dosage: 5MG 4-5 TIMES A DAY
     Route: 048
     Dates: start: 201610, end: 201705

REACTIONS (2)
  - Constipation [Recovered/Resolved]
  - Neurectomy [Recovered/Resolved]

NARRATIVE: CASE EVENT DATE: 20161002
